FAERS Safety Report 4365964-3 (Version None)
Quarter: 2004Q2

REPORT INFORMATION
  Report Type: 
  Country: None (occurrence: None)
  Receive Date: 20040521
  Receipt Date: 20040427
  Transmission Date: 20050107
  Serious: Yes (Death)
  Sender: FDA-Public Use
  Company Number: JP_040402953

PATIENT
  Age: 72 Year
  Sex: Male
  Weight: 48 kg

DRUGS (10)
  1. GEMZAR [Suspect]
     Indication: NON-SMALL CELL LUNG CANCER RECURRENT
     Dosage: 1110 MG OTHER
     Dates: start: 20020618, end: 20020625
  2. TAXOTERE [Concomitant]
  3. DECADRON [Concomitant]
  4. RESTAMIN (DIPHENHYDRAMINE) [Concomitant]
  5. MS CONTIN [Concomitant]
  6. LOXONIN (LOXOPROFEN SODIUM) [Concomitant]
  7. ADALAT [Concomitant]
  8. MUCOSOLVAN (AMBROXOL HYDROCHLORIDE) [Concomitant]
  9. THEO-DUR [Concomitant]
  10. HALCION [Concomitant]

REACTIONS (7)
  - BLOOD PH INCREASED [None]
  - CHEST X-RAY ABNORMAL [None]
  - DRUG EFFECT DECREASED [None]
  - INTERSTITIAL LUNG DISEASE [None]
  - MALIGNANT NEOPLASM PROGRESSION [None]
  - RESPIRATORY DISORDER [None]
  - STRIDOR [None]
